FAERS Safety Report 14584889 (Version 4)
Quarter: 2018Q3

REPORT INFORMATION
  Report Type: Spontaneous
  Country: JP (occurrence: JP)
  Receive Date: 20180301
  Receipt Date: 20180828
  Transmission Date: 20181010
  Serious: Yes (Other)
  Sender: FDA-Public Use
  Company Number: JP-TAKEDA-2018TJP005867

PATIENT
  Age: 75 Year
  Sex: Male

DRUGS (3)
  1. ATELEC [Concomitant]
     Active Substance: CILNIDIPINE
     Dosage: 10 MG, QD
     Route: 048
  2. ACTOS [Suspect]
     Active Substance: PIOGLITAZONE HYDROCHLORIDE
     Indication: DIABETES MELLITUS
     Dosage: 15 MG, QD
     Route: 048
     Dates: end: 20170801
  3. CRESTOR [Concomitant]
     Active Substance: ROSUVASTATIN CALCIUM
     Dosage: 5 MG, QD
     Route: 048

REACTIONS (3)
  - Bladder cancer [Not Recovered/Not Resolved]
  - Malignant neoplasm of renal pelvis [Recovering/Resolving]
  - Haematuria [Unknown]

NARRATIVE: CASE EVENT DATE: 20170616
